FAERS Safety Report 6585862-4 (Version None)
Quarter: 2010Q1

REPORT INFORMATION
  Report Type: 
  Country: None (occurrence: None)
  Receive Date: 20100217
  Receipt Date: 20100204
  Transmission Date: 20100710
  Serious: Yes (Other)
  Sender: FDA-Public Use
  Company Number: PHHY2010CH07082

PATIENT
  Age: 71 Year
  Sex: Female

DRUGS (5)
  1. ACLASTA [Suspect]
     Indication: OSTEOPOROSIS
     Dosage: 5 MG, UNK
     Route: 042
     Dates: start: 20100119
  2. VITAMIN D3 [Concomitant]
     Dosage: 1000 IU PER DAY
  3. COAPROVEL [Concomitant]
  4. METFIN [Concomitant]
     Indication: DIABETES MELLITUS
  5. SORTIS [Concomitant]

REACTIONS (1)
  - LIP OEDEMA [None]
